FAERS Safety Report 5649586-X (Version None)
Quarter: 2008Q1

REPORT INFORMATION
  Report Type: 
  Country: None (occurrence: None)
  Receive Date: 20080304
  Receipt Date: 20080221
  Transmission Date: 20080703
  Serious: Yes (Hospitalization)
  Sender: FDA-Public Use
  Company Number: FR-PFIZER INC-2006032606

PATIENT
  Sex: Male

DRUGS (5)
  1. SU-011,248 [Suspect]
     Indication: RENAL CELL CARCINOMA
     Route: 048
  2. FELODIPINE [Concomitant]
     Route: 048
  3. SELECTOL [Concomitant]
     Dosage: TEXT:200
     Route: 048
  4. ALLOPURINOL [Concomitant]
     Route: 048
  5. COAPROVEL [Concomitant]
     Dosage: TEXT:300
     Route: 048

REACTIONS (3)
  - HYPERTENSION [None]
  - PROTEINURIA [None]
  - RENAL FAILURE [None]
